FAERS Safety Report 4767210-5 (Version None)
Quarter: 2005Q3

REPORT INFORMATION
  Report Type: 
  Country: None (occurrence: None)
  Receive Date: 20050912
  Receipt Date: 20050912
  Transmission Date: 20060218
  Serious: Yes (Disabling)
  Sender: FDA-Public Use
  Company Number: None

PATIENT
  Age: 84 Year
  Sex: Male
  Weight: 95.2554 kg

DRUGS (10)
  1. LIPITOR [Suspect]
     Indication: ATHEROSCLEROSIS
     Dosage: 10 MG ONCE DAILY
     Dates: start: 20030101, end: 20040101
  2. LIPITOR [Suspect]
     Indication: LOW DENSITY LIPOPROTEIN INCREASED
     Dosage: 10 MG ONCE DAILY
     Dates: start: 20030101, end: 20040101
  3. ZOCOR [Suspect]
     Indication: ATHEROSCLEROSIS
     Dosage: 20 MG ONCE DAILY
     Dates: start: 20040101, end: 20050701
  4. ZOCOR [Suspect]
     Indication: LOW DENSITY LIPOPROTEIN INCREASED
     Dosage: 20 MG ONCE DAILY
     Dates: start: 20040101, end: 20050701
  5. AVAPRO [Concomitant]
  6. ASPIRIN [Concomitant]
  7. FOLIC ACID [Concomitant]
  8. MULTI-VITAMIN [Concomitant]
  9. VITAMIN B-12 [Concomitant]
  10. VITAMIN B6 [Concomitant]

REACTIONS (9)
  - CONDITION AGGRAVATED [None]
  - DIASTOLIC DYSFUNCTION [None]
  - FATIGUE [None]
  - HYPOAESTHESIA [None]
  - IMPAIRED DRIVING ABILITY [None]
  - MYALGIA [None]
  - MYOPATHY [None]
  - NEUROPATHY PERIPHERAL [None]
  - POLYNEUROPATHY [None]
